FAERS Safety Report 20821097 (Version 4)
Quarter: 2023Q4

REPORT INFORMATION
  Report Type: Spontaneous
  Country: US (occurrence: US)
  Receive Date: 20220512
  Receipt Date: 20231026
  Transmission Date: 20240109
  Serious: Yes (Other)
  Sender: FDA-Public Use
  Company Number: US-PFIZER INC-202101402733

PATIENT
  Age: 79 Year
  Sex: Female

DRUGS (1)
  1. XELJANZ XR [Suspect]
     Active Substance: TOFACITINIB CITRATE
     Indication: Psoriatic arthropathy
     Dosage: 11 MG, DAILY
     Route: 048

REACTIONS (10)
  - Shock hypoglycaemic [Unknown]
  - Deafness [Unknown]
  - Product prescribing error [Unknown]
  - Panic reaction [Unknown]
  - Pain [Unknown]
  - Condition aggravated [Unknown]
  - Asthma [Not Recovered/Not Resolved]
  - Feeling abnormal [Unknown]
  - Illness [Unknown]
  - Blood pressure abnormal [Unknown]

NARRATIVE: CASE EVENT DATE: 20231019
